FAERS Safety Report 15203813 (Version 1)
Quarter: 2018Q4

REPORT INFORMATION
  Report Type: Spontaneous
  Country: CA (occurrence: CA)
  Receive Date: 20180726
  Receipt Date: 20180726
  Transmission Date: 20190204
  Serious: Yes (Life-Threatening, Hospitalization, Disabling)
  Sender: FDA-Public Use
  Company Number: CA-FRESENIUS KABI-FK201808180

PATIENT
  Age: 45 Year
  Sex: Female

DRUGS (4)
  1. HEPARIN SODIUM (MANUFACTURER UNKNOWN) [Suspect]
     Active Substance: HEPARIN SODIUM
     Indication: THROMBOSIS PROPHYLAXIS
     Dosage: 5000 UNITS
     Route: 058
  2. HEPARIN SODIUM INJECTION USP (MULTIDOSE VIAL WITH PRESERVATIVE) [Suspect]
     Active Substance: HEPARIN SODIUM
     Indication: THROMBOSIS PROPHYLAXIS
     Route: 065
  3. HEPARIN SODIUM INJECTION USP (MULTIDOSE VIAL WITH PRESERVATIVE) [Suspect]
     Active Substance: HEPARIN SODIUM
     Indication: ACUTE KIDNEY INJURY
  4. LOVENOX [Concomitant]
     Active Substance: ENOXAPARIN SODIUM
     Indication: PRODUCT USED FOR UNKNOWN INDICATION
     Dosage: UNKNOWN
     Route: 065

REACTIONS (4)
  - Peripheral ischaemia [Recovering/Resolving]
  - Thrombectomy [Recovering/Resolving]
  - Heparin-induced thrombocytopenia test positive [Recovering/Resolving]
  - Arm amputation [Recovering/Resolving]
